FAERS Safety Report 9871924 (Version 2)
Quarter: 2014Q1

REPORT INFORMATION
  Report Type: Spontaneous
  Country: US (occurrence: US)
  Receive Date: 20140205
  Receipt Date: 20140205
  Transmission Date: 20141002
  Serious: No
  Sender: FDA-Public Use
  Company Number: US-ALLERGAN-1305230US

PATIENT
  Sex: Female

DRUGS (2)
  1. BOTOX COSMETIC [Suspect]
     Indication: SKIN WRINKLING
     Dosage: 2 UNITS, SINGLE
     Route: 030
     Dates: start: 20130409, end: 20130409
  2. BOTOX COSMETIC [Suspect]
     Dosage: 2 UNITS, SINGLE
     Route: 030
     Dates: start: 20130409, end: 20130409

REACTIONS (2)
  - Off label use [Unknown]
  - Injection site swelling [Recovering/Resolving]
